FAERS Safety Report 5566674-7 (Version None)
Quarter: 2007Q4

REPORT INFORMATION
  Report Type: 
  Country: None (occurrence: None)
  Receive Date: 20071217
  Receipt Date: 20071217
  Transmission Date: 20080405
  Serious: Yes (Hospitalization)
  Sender: FDA-Public Use
  Company Number: None

PATIENT
  Age: 52 Year
  Sex: Male

DRUGS (2)
  1. ACETAMINOPHEN [Suspect]
     Indication: SURGERY
     Dosage: 250MG UNKNOWN PO
     Route: 048
     Dates: start: 20020101, end: 20070925
  2. ASPIRIN [Suspect]

REACTIONS (2)
  - GASTRIC ULCER [None]
  - HAEMATEMESIS [None]
